FAERS Safety Report 13913675 (Version 2)
Quarter: 2023Q1

REPORT INFORMATION
  Report Type: Spontaneous
  Country: PL (occurrence: PL)
  Receive Date: 20170829
  Receipt Date: 20230128
  Transmission Date: 20230418
  Serious: Yes (Life-Threatening)
  Sender: FDA-Public Use
  Company Number: PL-ACCORD-057682

PATIENT
  Age: 64 Year
  Sex: Female
  Weight: 85.00 kg

DRUGS (2)
  1. OXALIPLATIN [Suspect]
     Active Substance: OXALIPLATIN
     Indication: Rectosigmoid cancer
     Route: 042
     Dates: start: 20170810, end: 20170810
  2. OXALIPLATIN [Suspect]
     Active Substance: OXALIPLATIN
     Indication: Rectosigmoid cancer
     Dosage: STRENGTH: 5MG/ML
     Dates: start: 20170810, end: 20170810

REACTIONS (5)
  - Altered state of consciousness [Recovered/Resolved]
  - Speech disorder [Recovered/Resolved]
  - Pruritus [Recovered/Resolved]
  - Asthenia [Recovered/Resolved]
  - Blood pressure decreased [Recovered/Resolved]

NARRATIVE: CASE EVENT DATE: 20170810
